FAERS Safety Report 4301025-7 (Version None)
Quarter: 2004Q1

REPORT INFORMATION
  Report Type: 
  Country: None (occurrence: None)
  Receive Date: 20040219
  Receipt Date: 20040209
  Transmission Date: 20041129
  Serious: Yes (Hospitalization)
  Sender: FDA-Public Use
  Company Number: 04P-056-0250335-00

PATIENT
  Age: 79 Year
  Sex: Male

DRUGS (6)
  1. TRICOR [Suspect]
     Indication: DRUG USE FOR UNKNOWN INDICATION
     Dosage: 200 MG, 1 IN 1 D, PER ORAL
     Route: 048
     Dates: end: 20000621
  2. FLUINDIONE [Concomitant]
  3. AMIODARONE HYDROCHLORIDE [Concomitant]
  4. SPIRONOLACTONE [Concomitant]
  5. ZESTORETIC [Concomitant]
  6. HEPARIN CALCIUM [Concomitant]

REACTIONS (1)
  - RENAL FAILURE ACUTE [None]
